FAERS Safety Report 21332929 (Version 1)
Quarter: 2022Q3

REPORT INFORMATION
  Report Type: Spontaneous
  Country: US (occurrence: None)
  Receive Date: 20220913
  Receipt Date: 20220913
  Transmission Date: 20221027
  Serious: No
  Sender: FDA-Public Use
  Company Number: None

PATIENT
  Age: 30 Year
  Sex: Male
  Weight: 63 kg

DRUGS (1)
  1. ROCEPHIN [Suspect]
     Active Substance: CEFTRIAXONE SODIUM
     Indication: Cellulitis
     Dosage: OTHER FREQUENCY : ONCE;?
     Route: 030
     Dates: start: 20220912, end: 20220912

REACTIONS (1)
  - Rash [None]

NARRATIVE: CASE EVENT DATE: 20220913
